FAERS Safety Report 24195345 (Version 1)
Quarter: 2024Q3

REPORT INFORMATION
  Report Type: Spontaneous
  Country: CN (occurrence: CN)
  Receive Date: 20240809
  Receipt Date: 20240809
  Transmission Date: 20241017
  Serious: Yes (Life-Threatening, Other)
  Sender: BRISTOL MYERS SQUIBB
  Company Number: CN-BRISTOL-MYERS SQUIBB COMPANY-2022-017112

PATIENT
  Age: 56 Year
  Sex: Female

DRUGS (36)
  1. PACLITAXEL [Suspect]
     Active Substance: PACLITAXEL
     Indication: Metastases to bone
     Dosage: IVGTT, 50 MG/M2 ON DAYS 1 AND 8 Q4WKS, PTX WAS INFUSED INTRAVENOUSLY AT THE SAME TIME
     Route: 042
     Dates: start: 20210329, end: 20210615
  2. PACLITAXEL [Suspect]
     Active Substance: PACLITAXEL
     Indication: Metastases to spine
     Dosage: IVGTT, 50 MG/M2 ON DAYS 1 AND 8 Q4WKS, PTX WAS INFUSED INTRAVENOUSLY AT THE SAME TIME
     Route: 033
     Dates: start: 20210329, end: 20210615
  3. PACLITAXEL [Suspect]
     Active Substance: PACLITAXEL
     Indication: Metastases to peritoneum
  4. PACLITAXEL [Suspect]
     Active Substance: PACLITAXEL
     Indication: Metastases to rectum
  5. PACLITAXEL [Suspect]
     Active Substance: PACLITAXEL
     Indication: Gastric cancer stage IV
  6. PACLITAXEL [Suspect]
     Active Substance: PACLITAXEL
     Indication: Metastases to bladder
  7. GIMERACIL\OTERACIL\TEGAFUR [Suspect]
     Active Substance: GIMERACIL\OTERACIL POTASSIUM\TEGAFUR
     Indication: Metastases to bladder
     Dosage: S-1 PO, 40 MG, FOR 14 DAYS, Q3WKS
     Route: 048
     Dates: start: 20210329, end: 20210615
  8. GIMERACIL\OTERACIL\TEGAFUR [Suspect]
     Active Substance: GIMERACIL\OTERACIL POTASSIUM\TEGAFUR
     Indication: Gastric cancer stage IV
  9. GIMERACIL\OTERACIL\TEGAFUR [Suspect]
     Active Substance: GIMERACIL\OTERACIL POTASSIUM\TEGAFUR
     Indication: Metastases to peritoneum
  10. GIMERACIL\OTERACIL\TEGAFUR [Suspect]
     Active Substance: GIMERACIL\OTERACIL POTASSIUM\TEGAFUR
     Indication: Metastases to bone
  11. GIMERACIL\OTERACIL\TEGAFUR [Suspect]
     Active Substance: GIMERACIL\OTERACIL POTASSIUM\TEGAFUR
     Indication: Metastases to spine
  12. GIMERACIL\OTERACIL\TEGAFUR [Suspect]
     Active Substance: GIMERACIL\OTERACIL POTASSIUM\TEGAFUR
     Indication: Metastases to rectum
  13. OXALIPLATIN [Suspect]
     Active Substance: OXALIPLATIN
     Indication: Gastric cancer stage IV
     Dates: start: 20210318, end: 20210615
  14. OXALIPLATIN [Suspect]
     Active Substance: OXALIPLATIN
     Indication: Metastases to bone
  15. OXALIPLATIN [Suspect]
     Active Substance: OXALIPLATIN
     Indication: Metastases to bladder
  16. OXALIPLATIN [Suspect]
     Active Substance: OXALIPLATIN
     Indication: Metastases to spine
  17. OXALIPLATIN [Suspect]
     Active Substance: OXALIPLATIN
     Indication: Metastases to peritoneum
  18. OXALIPLATIN [Suspect]
     Active Substance: OXALIPLATIN
     Indication: Metastases to rectum
  19. RIVOCERANIB [Suspect]
     Active Substance: RIVOCERANIB
     Indication: Metastases to bladder
     Dosage: PO 0.5 G, QD, FOR 14 DAYS Q3WKS
     Route: 048
     Dates: start: 20210321, end: 20210615
  20. RIVOCERANIB [Suspect]
     Active Substance: RIVOCERANIB
     Indication: Adenocarcinoma gastric
     Dosage: PO 0.5 G, QD, FOR 14 DAYS Q3WKS
     Route: 048
     Dates: start: 20210624
  21. RIVOCERANIB [Suspect]
     Active Substance: RIVOCERANIB
     Indication: Metastases to peritoneum
  22. RIVOCERANIB [Suspect]
     Active Substance: RIVOCERANIB
     Indication: Metastases to bone
  23. RIVOCERANIB [Suspect]
     Active Substance: RIVOCERANIB
     Indication: Metastases to rectum
  24. RIVOCERANIB [Suspect]
     Active Substance: RIVOCERANIB
     Indication: Metastases to spine
  25. CAMRELIZUMAB [Suspect]
     Active Substance: CAMRELIZUMAB
     Indication: Adenocarcinoma gastric
     Dosage: IVGTT 200 MG Q3WKS
     Route: 041
     Dates: start: 20210315, end: 20210615
  26. CAMRELIZUMAB [Suspect]
     Active Substance: CAMRELIZUMAB
     Indication: Metastases to bladder
  27. CAMRELIZUMAB [Suspect]
     Active Substance: CAMRELIZUMAB
     Indication: Metastases to bone
  28. CAMRELIZUMAB [Suspect]
     Active Substance: CAMRELIZUMAB
     Indication: Metastases to peritoneum
  29. CAMRELIZUMAB [Suspect]
     Active Substance: CAMRELIZUMAB
     Indication: Metastases to rectum
  30. CAMRELIZUMAB [Suspect]
     Active Substance: CAMRELIZUMAB
     Indication: Metastases to spine
  31. SALINE [BORIC ACID;EDETATE DISODIUM;SODIUM BORATE;SORBIC ACID] [Concomitant]
     Indication: Metastases to spine
     Dosage: 20 MG/ M2 ON DAYS 1 AND 8, Q4WKS, PTX WAS DILUTED IN 1000 ML SALINE AND MINISTERED INTRAPERITONEALLY
     Route: 033
     Dates: start: 20210329, end: 20210615
  32. SALINE [BORIC ACID;EDETATE DISODIUM;SODIUM BORATE;SORBIC ACID] [Concomitant]
     Indication: Metastases to rectum
  33. SALINE [BORIC ACID;EDETATE DISODIUM;SODIUM BORATE;SORBIC ACID] [Concomitant]
     Indication: Metastases to bone
  34. SALINE [BORIC ACID;EDETATE DISODIUM;SODIUM BORATE;SORBIC ACID] [Concomitant]
     Indication: Metastases to peritoneum
  35. SALINE [BORIC ACID;EDETATE DISODIUM;SODIUM BORATE;SORBIC ACID] [Concomitant]
     Indication: Metastases to bladder
  36. SALINE [BORIC ACID;EDETATE DISODIUM;SODIUM BORATE;SORBIC ACID] [Concomitant]
     Indication: Gastric cancer stage IV

REACTIONS (7)
  - Gastrointestinal haemorrhage [Recovering/Resolving]
  - Bacterial infection [Recovering/Resolving]
  - Myelosuppression [Recovering/Resolving]
  - Rash [Recovering/Resolving]
  - Mouth ulceration [Recovering/Resolving]
  - Off label use [Unknown]
  - Fungal infection [Recovering/Resolving]

NARRATIVE: CASE EVENT DATE: 20210601
